FAERS Safety Report 18640019 (Version 1)
Quarter: 2020Q4

REPORT INFORMATION
  Report Type: Spontaneous
  Country: US (occurrence: US)
  Receive Date: 20201220
  Receipt Date: 20201220
  Transmission Date: 20210114
  Serious: No
  Sender: FDA-Public Use
  Company Number: US-PACIRA-202000409

PATIENT
  Age: 30 Year
  Sex: Female

DRUGS (4)
  1. ANCEF [Concomitant]
     Active Substance: CEFAZOLIN SODIUM
     Indication: PRODUCT USED FOR UNKNOWN INDICATION
     Dosage: 2 G PREOPERATIVELY
     Route: 042
     Dates: start: 20200928, end: 20200928
  2. BUPIVACAINE. [Suspect]
     Active Substance: BUPIVACAINE
     Indication: NERVE BLOCK
     Dosage: 10 ML WITH 10 ML OF EXPAREL
     Route: 065
     Dates: start: 20200928, end: 20200928
  3. ETHINYL ESTRADIOL NORGESTIMATE [Concomitant]
     Indication: CONTRACEPTION
     Dosage: ONE TABLET DAILY AT BEDTIME
     Route: 048
  4. EXPAREL [Suspect]
     Active Substance: BUPIVACAINE
     Indication: NERVE BLOCK
     Dosage: 133 MG (10 ML) WITH 10 ML OF 0.5% BUP?VACAINE
     Route: 065
     Dates: start: 20200928, end: 20200928

REACTIONS (2)
  - Pain [Recovered/Resolved]
  - Drug ineffective [Recovered/Resolved]

NARRATIVE: CASE EVENT DATE: 20200928
